FAERS Safety Report 14350480 (Version 1)
Quarter: 2018Q1

REPORT INFORMATION
  Report Type: Report from Study
  Country: JP (occurrence: JP)
  Receive Date: 20180104
  Receipt Date: 20180104
  Transmission Date: 20180509
  Serious: Yes (Hospitalization, Other)
  Sender: FDA-Public Use
  Company Number: JP-AMGEN-JPNCT2017185032

PATIENT
  Age: 78 Year
  Sex: Male
  Weight: 66 kg

DRUGS (18)
  1. ROCALTROL [Concomitant]
     Active Substance: CALCITRIOL
     Indication: HYPERPARATHYROIDISM SECONDARY
     Dosage: 1 MUG, 2 TIMES/WK
     Route: 042
  2. FULMETA [Concomitant]
     Active Substance: MOMETASONE
     Indication: PRURITUS
     Dosage: UNK UNK, TID
     Route: 061
  3. DARBEPOETIN ALFA [Suspect]
     Active Substance: DARBEPOETIN ALFA
     Dosage: 30 MUG, UNK
     Route: 042
     Dates: start: 20170321
  4. SENNARIDE [Concomitant]
     Active Substance: SENNOSIDES A AND B
     Indication: CONSTIPATION
     Dosage: 36 MG, UNK
     Route: 048
  5. HIRUDOID [Concomitant]
     Active Substance: GLYCOSAMINOGLYCANS
     Indication: PRURITUS
     Dosage: UNK, BID
     Route: 061
     Dates: start: 20170627
  6. ALMETA [Concomitant]
     Active Substance: ALCLOMETASONE DIPROPIONATE
     Indication: PRURITUS
     Dosage: UNK, QD
     Route: 061
     Dates: start: 20170425
  7. HEPARINOID [Concomitant]
     Active Substance: CHONDROITIN SULFATE (BOVINE)
     Indication: PRURITUS
     Dosage: UNK, QD
     Route: 061
     Dates: start: 20170727
  8. SODIUM CHLORIDE. [Concomitant]
     Active Substance: SODIUM CHLORIDE
     Indication: MUSCLE SPASMS
     Dosage: UNK UNK, AS NECESSARY
     Route: 042
  9. DARBEPOETIN ALFA [Suspect]
     Active Substance: DARBEPOETIN ALFA
     Indication: PRODUCT USED FOR UNKNOWN INDICATION
     Dosage: UNK
     Route: 042
     Dates: start: 20170221
  10. LOXONIN [Concomitant]
     Active Substance: LOXOPROFEN SODIUM
     Indication: MUSCLE SPASMS
     Dosage: UNK, BID
     Route: 061
     Dates: start: 20170620
  11. CILNIDIPINE [Concomitant]
     Active Substance: CILNIDIPINE
     Indication: HYPERTENSION
     Dosage: 10 MG, BID
     Route: 048
     Dates: end: 20170807
  12. AZILVA [Concomitant]
     Active Substance: AZILSARTAN KAMEDOXOMIL
     Indication: HYPERTENSION
     Dosage: 40 MG, QD
     Route: 048
     Dates: end: 20170807
  13. SHAKUYAKUKANZOTO [Concomitant]
     Active Substance: HERBALS
     Indication: MUSCLE SPASMS
     Dosage: 1 DF, UNK
     Route: 048
  14. KALIMATE [Concomitant]
     Active Substance: CALCIUM POLYSTYRENE SULFONATE
     Indication: HYPERKALAEMIA
     Dosage: 2 DF, TID
     Route: 048
     Dates: start: 20170328
  15. BIO-THREE [Concomitant]
     Active Substance: HERBALS
     Indication: ENTEROCOLITIS
     Dosage: 1 DF, TID
     Route: 048
  16. MASHININGAN [Concomitant]
     Active Substance: HERBALS
     Indication: CONSTIPATION
     Dosage: 1 DF, UNK
     Route: 048
  17. AMLODIPINE [Concomitant]
     Active Substance: AMLODIPINE BESYLATE
     Indication: HYPERTENSION
     Dosage: 10 MG, QD
     Route: 048
     Dates: end: 20170807
  18. KIKLIN [Concomitant]
     Active Substance: BIXALOMER
     Indication: HYPERPHOSPHATAEMIA
     Dosage: 750 MG, TID
     Route: 048

REACTIONS (7)
  - Shunt stenosis [Recovered/Resolved]
  - Atrial fibrillation [Recovered/Resolved]
  - Nasopharyngitis [Recovered/Resolved]
  - Atrial fibrillation [Not Recovered/Not Resolved]
  - Shunt occlusion [Recovered/Resolved]
  - Shunt occlusion [Recovered/Resolved]
  - Dermatitis contact [Recovered/Resolved]

NARRATIVE: CASE EVENT DATE: 20170418
